FAERS Safety Report 4723614-8 (Version None)
Quarter: 2005Q3

REPORT INFORMATION
  Report Type: 
  Country: None (occurrence: None)
  Receive Date: 20050719
  Receipt Date: 20050308
  Transmission Date: 20060218
  Serious: Yes (Other)
  Sender: FDA-Public Use
  Company Number: 2005BH000578

PATIENT
  Sex: 0

DRUGS (1)
  1. HEMOFIL [Suspect]
     Indication: HAEMOPHILIA

REACTIONS (2)
  - HEPATITIS C [None]
  - PHARMACEUTICAL PRODUCT COMPLAINT [None]
